FAERS Safety Report 8069765-4 (Version None)
Quarter: 2012Q1

REPORT INFORMATION
  Report Type: 
  Country: None (occurrence: None)
  Receive Date: 20120125
  Receipt Date: 20120123
  Transmission Date: 20120608
  Serious: No
  Sender: FDA-Public Use
  Company Number: US-PFIZER INC-2012018772

PATIENT
  Sex: Male
  Weight: 120.18 kg

DRUGS (5)
  1. NEURONTIN [Suspect]
     Dosage: 1200 MG, 1X/DAY
     Route: 048
  2. LORTAB [Concomitant]
     Dosage: UNK
  3. XANAX [Suspect]
     Dosage: UNK
  4. ELAVIL [Concomitant]
     Dosage: 100 MG, 3X/DAY
  5. OXYCODONE [Concomitant]
     Dosage: 20 MG, UNK

REACTIONS (3)
  - NEURALGIA [None]
  - ROAD TRAFFIC ACCIDENT [None]
  - DRUG INEFFECTIVE [None]
